FAERS Safety Report 14772992 (Version 1)
Quarter: 2018Q2

REPORT INFORMATION
  Report Type: Spontaneous
  Country: US (occurrence: US)
  Receive Date: 20180418
  Receipt Date: 20180418
  Transmission Date: 20180711
  Serious: No
  Sender: FDA-Public Use
  Company Number: US-TEVA-767108ACC

PATIENT
  Sex: Female

DRUGS (6)
  1. CALCIUM [Concomitant]
     Active Substance: CALCIUM
  2. MULTIVITAMINS [Concomitant]
     Active Substance: VITAMINS
  3. BIOTIN [Concomitant]
     Active Substance: BIOTIN
  4. IRON [Concomitant]
     Active Substance: IRON
  5. TOPIRAMATE. [Suspect]
     Active Substance: TOPIRAMATE
     Indication: HEAD INJURY
     Dates: start: 20170503
  6. RANITIDINE. [Concomitant]
     Active Substance: RANITIDINE

REACTIONS (5)
  - Neck pain [Unknown]
  - Head discomfort [Unknown]
  - Product use in unapproved indication [Unknown]
  - Somnolence [Unknown]
  - Pain in extremity [Unknown]

NARRATIVE: CASE EVENT DATE: 20170503
